FAERS Safety Report 8255951-7 (Version None)
Quarter: 2012Q1

REPORT INFORMATION
  Report Type: 
  Country: None (occurrence: None)
  Receive Date: 20120330
  Receipt Date: 20120315
  Transmission Date: 20120608
  Serious: Yes (Hospitalization)
  Sender: FDA-Public Use
  Company Number: JP-2012-13172

PATIENT
  Age: 67 Year
  Sex: Male

DRUGS (5)
  1. ATORVASTATIN CALCIUM [Concomitant]
  2. CLOPIDOGREL [Suspect]
     Indication: CORONARY ARTERY DISEASE
     Dosage: 75 MG MILLIGRAM(S), DAILY DOSE, ORAL
     Route: 048
     Dates: start: 20110216
  3. LORELCO [Suspect]
     Indication: CORONARY ARTERY DISEASE
     Dosage: 500 MG MILLIGRAM(S), DAILY DOSE, ORAL
     Route: 048
     Dates: start: 20120108, end: 20120112
  4. CILOSTAZOL [Suspect]
     Indication: CORONARY ARTERY DISEASE
     Dosage: 200 MG MILLIGRAM(S), DAILY DOSE, ORAL
     Route: 048
     Dates: start: 20120108, end: 20120112
  5. ASPIRIN [Suspect]
     Indication: CORONARY ARTERY DISEASE
     Dosage: 0.1 G GRAM(S), DAILY DOSE, ORAL
     Route: 048
     Dates: start: 20110216, end: 20120112

REACTIONS (1)
  - UPPER GASTROINTESTINAL HAEMORRHAGE [None]
